FAERS Safety Report 18186352 (Version 1)
Quarter: 2020Q3

REPORT INFORMATION
  Report Type: Spontaneous
  Country: US (occurrence: US)
  Receive Date: 20200823
  Receipt Date: 20200823
  Transmission Date: 20201103
  Serious: Yes (Disabling)
  Sender: FDA-Public Use
  Company Number: None

PATIENT
  Age: 17 Year
  Sex: Female
  Weight: 76.5 kg

DRUGS (2)
  1. NEXPLANON [Suspect]
     Active Substance: ETONOGESTREL
     Indication: MENSTRUAL DISORDER
     Dosage: ?          QUANTITY:1 IMPLANT;?
     Route: 058
     Dates: start: 20180308, end: 20190924
  2. NEXPLANON [Suspect]
     Active Substance: ETONOGESTREL
     Indication: CONTRACEPTION
     Dosage: ?          QUANTITY:1 IMPLANT;?
     Route: 058
     Dates: start: 20180308, end: 20190924

REACTIONS (13)
  - Menorrhagia [None]
  - Loss of personal independence in daily activities [None]
  - Weight increased [None]
  - Anhedonia [None]
  - Anaemia [None]
  - Visual impairment [None]
  - Anxiety [None]
  - Blindness transient [None]
  - Loss of libido [None]
  - Headache [None]
  - Anorgasmia [None]
  - Panic attack [None]
  - Condition aggravated [None]

NARRATIVE: CASE EVENT DATE: 20180316
